FAERS Safety Report 12622370 (Version 1)
Quarter: 2016Q3

REPORT INFORMATION
  Report Type: Spontaneous
  Country: US (occurrence: US)
  Receive Date: 20160804
  Receipt Date: 20160804
  Transmission Date: 20161109
  Serious: No
  Sender: FDA-Public Use
  Company Number: US-PFIZER INC-2016354845

PATIENT
  Age: 77 Year
  Sex: Female

DRUGS (2)
  1. SYNTHROID [Concomitant]
     Active Substance: LEVOTHYROXINE SODIUM
     Indication: AUTOIMMUNE THYROIDITIS
     Dosage: 1/2 OF 0.75 MCG AND HALF OF A 0.88 MCG, 1X/DAY
     Route: 048
     Dates: start: 1980
  2. ADVIL [Suspect]
     Active Substance: IBUPROFEN
     Indication: HEADACHE
     Dosage: 200 MG (200 MG, ONE), UNK
     Route: 048
     Dates: start: 1996, end: 201607

REACTIONS (3)
  - Sinus disorder [Recovered/Resolved]
  - Throat tightness [Recovered/Resolved]
  - Choking sensation [Recovered/Resolved]

NARRATIVE: CASE EVENT DATE: 201607
